FAERS Safety Report 9842629 (Version 3)
Quarter: 2014Q3

REPORT INFORMATION
  Report Type: Spontaneous
  Country: US (occurrence: US)
  Receive Date: 20140124
  Receipt Date: 20140818
  Transmission Date: 20150326
  Serious: Yes (Death, Other)
  Sender: FDA-Public Use
  Company Number: US-009507513-1401USA011262

PATIENT
  Sex: Female
  Weight: 88.44 kg

DRUGS (1)
  1. JANUVIA [Suspect]
     Active Substance: SITAGLIPTIN PHOSPHATE
     Indication: TYPE 2 DIABETES MELLITUS
     Dosage: 100 MG, QD
     Route: 048
     Dates: start: 20110401, end: 20120413

REACTIONS (25)
  - Cardiac valve disease [Unknown]
  - Mitral valve prolapse [Unknown]
  - Adenocarcinoma pancreas [Unknown]
  - Microcytic anaemia [Unknown]
  - Parkinson^s disease [Unknown]
  - Increased tendency to bruise [Unknown]
  - Radiotherapy [Unknown]
  - Cystitis [Unknown]
  - Measles [Unknown]
  - Death [Fatal]
  - Pericardial excision [Unknown]
  - Hyperlipidaemia [Unknown]
  - Insomnia [Unknown]
  - Limb injury [Unknown]
  - Transient ischaemic attack [Unknown]
  - Incontinence [Unknown]
  - Speech disorder [Unknown]
  - Balance disorder [Unknown]
  - Depression [Unknown]
  - Aortic valve replacement [Unknown]
  - Hypothyroidism [Unknown]
  - Memory impairment [Unknown]
  - Coronary artery bypass [Unknown]
  - Benign bone neoplasm [Unknown]
  - Myalgia [Unknown]

NARRATIVE: CASE EVENT DATE: 201104
